FAERS Safety Report 11737309 (Version 1)
Quarter: 2015Q4

REPORT INFORMATION
  Report Type: Spontaneous
  Country: US (occurrence: US)
  Receive Date: 20151110
  Receipt Date: 20151110
  Transmission Date: 20160304
  Serious: No
  Sender: FDA-Public Use
  Company Number: US-ELI_LILLY_AND_COMPANY-US201201003968

PATIENT
  Sex: Female

DRUGS (10)
  1. CIPRO [Concomitant]
     Active Substance: CIPROFLOXACIN HYDROCHLORIDE
     Indication: CYSTITIS
  2. FORTEO [Suspect]
     Active Substance: TERIPARATIDE
     Dosage: 20 UG, QD
     Route: 065
  3. VITAMIN C [Concomitant]
     Active Substance: ASCORBIC ACID
  4. VITAMIN D3 [Concomitant]
     Active Substance: CHOLECALCIFEROL
  5. FORTEO [Suspect]
     Active Substance: TERIPARATIDE
     Dosage: 20 UG, QD
     Route: 065
  6. FORTEO [Suspect]
     Active Substance: TERIPARATIDE
     Dosage: 20 UG, QD
     Route: 065
  7. VITAMINS [Concomitant]
     Active Substance: VITAMINS
  8. MUSCLE RELAXANTS [Concomitant]
     Active Substance: UNSPECIFIED INGREDIENT
  9. FORTEO [Suspect]
     Active Substance: TERIPARATIDE
     Indication: OSTEOPOROSIS
     Dosage: 20 UG, QD
     Route: 065
     Dates: start: 2011
  10. FORTEO [Suspect]
     Active Substance: TERIPARATIDE
     Dosage: 20 UG, QD
     Route: 065

REACTIONS (29)
  - Joint swelling [Unknown]
  - Swelling [Unknown]
  - Pain [Not Recovered/Not Resolved]
  - Injection site pain [Unknown]
  - Back pain [Unknown]
  - Osteoporosis [Unknown]
  - Sleep disorder due to general medical condition, insomnia type [Recovering/Resolving]
  - Neck injury [Unknown]
  - Arthralgia [Unknown]
  - Intervertebral disc protrusion [Unknown]
  - Joint crepitation [Unknown]
  - Spinal pain [Unknown]
  - Neck pain [Unknown]
  - Memory impairment [Unknown]
  - Injection site bruising [Not Recovered/Not Resolved]
  - Confusional state [Unknown]
  - Speech disorder [Unknown]
  - Back disorder [Unknown]
  - Pelvic pain [Unknown]
  - Gait disturbance [Unknown]
  - Spinal disorder [Unknown]
  - Injection site swelling [Unknown]
  - Malaise [Unknown]
  - Fatigue [Unknown]
  - Musculoskeletal discomfort [Unknown]
  - Fall [Unknown]
  - Intervertebral disc degeneration [Unknown]
  - Oropharyngeal discomfort [Unknown]
  - Depressed mood [Unknown]
